FAERS Safety Report 8503460-X (Version None)
Quarter: 2012Q3

REPORT INFORMATION
  Report Type: 
  Country: None (occurrence: None)
  Receive Date: 20120711
  Receipt Date: 20120702
  Transmission Date: 20120928
  Serious: Yes (Other)
  Sender: FDA-Public Use
  Company Number: US-GLAXOSMITHKLINE-A0983032A

PATIENT
  Age: 42 Year
  Sex: Female

DRUGS (4)
  1. SINGULAIR [Concomitant]
  2. ADVAIR DISKUS 100/50 [Suspect]
     Indication: ASTHMA
     Dosage: 1PUFF TWICE PER DAY
     Route: 055
     Dates: start: 19970701, end: 20120601
  3. PRILOSEC [Concomitant]
  4. CLARITIN [Concomitant]
     Route: 065

REACTIONS (4)
  - WHEEZING [None]
  - DYSPNOEA [None]
  - COUGH [None]
  - ROAD TRAFFIC ACCIDENT [None]
